FAERS Safety Report 7986560-2 (Version None)
Quarter: 2011Q4

REPORT INFORMATION
  Report Type: 
  Country: None (occurrence: None)
  Receive Date: 20111216
  Receipt Date: 20111205
  Transmission Date: 20120403
  Serious: Yes (Hospitalization)
  Sender: FDA-Public Use
  Company Number: CA-JNJFOC-20111204633

PATIENT
  Sex: Male
  Weight: 72.5 kg

DRUGS (3)
  1. HYDROMORPHONE HCL [Concomitant]
     Route: 065
  2. DOXEPIN [Concomitant]
     Route: 065
  3. REMICADE [Suspect]
     Indication: CROHN'S DISEASE
     Route: 042
     Dates: start: 20101118

REACTIONS (4)
  - ARTHRALGIA [None]
  - MUSCLE SPASMS [None]
  - DIARRHOEA [None]
  - VOMITING [None]
